FAERS Safety Report 10046674 (Version 1)
Quarter: 2014Q1

REPORT INFORMATION
  Report Type: Spontaneous
  Country: US (occurrence: US)
  Receive Date: 20140331
  Receipt Date: 20140331
  Transmission Date: 20141002
  Serious: Yes (Other)
  Sender: FDA-Public Use
  Company Number: US-SHIRE-US201400726

PATIENT
  Age: 42 Year
  Sex: Male

DRUGS (1)
  1. VYVANSE [Suspect]
     Indication: PRODUCT USED FOR UNKNOWN INDICATION
     Dosage: 70 MG, 1X/DAY:QD
     Route: 048

REACTIONS (2)
  - Paranoia [Unknown]
  - Dermatillomania [Unknown]
